FAERS Safety Report 6253804-7 (Version None)
Quarter: 2009Q2

REPORT INFORMATION
  Report Type: 
  Country: None (occurrence: None)
  Receive Date: 20090629
  Receipt Date: 20090629
  Transmission Date: 20091009
  Serious: Yes (Other)
  Sender: FDA-Public Use
  Company Number: None

PATIENT
  Age: 69 Year
  Sex: Male
  Weight: 90.7194 kg

DRUGS (2)
  1. ANDROGEL [Suspect]
     Indication: BLOOD TESTOSTERONE
     Dosage: X5GM TUBES 1 VIAL DAILY TRANSDERMAL
     Route: 062
     Dates: start: 20080905, end: 20080926
  2. TESTIM [Suspect]
     Indication: BLOOD TESTOSTERONE
     Dosage: X5GM TUBES 1 VIAL DAILY TRANSDERMAL
     Route: 062
     Dates: start: 20081005, end: 20081019

REACTIONS (3)
  - ANGER [None]
  - MOOD SWINGS [None]
  - PROSTATE CANCER [None]
